FAERS Safety Report 7736651-6 (Version None)
Quarter: 2011Q3

REPORT INFORMATION
  Report Type: 
  Country: None (occurrence: None)
  Receive Date: 20110908
  Receipt Date: 20110829
  Transmission Date: 20111222
  Serious: Yes (Other)
  Sender: FDA-Public Use
  Company Number: FR-JNJFOC-20110900562

PATIENT
  Sex: Female

DRUGS (13)
  1. CLONAZEPAM [Concomitant]
     Dosage: 3/4
     Route: 048
  2. NEULEPTIL [Concomitant]
     Route: 048
  3. FERROUS SULFATE TAB [Concomitant]
     Route: 048
  4. VALACYCLOVIR HYDROCHLORIDE [Concomitant]
     Route: 048
     Dates: start: 20060101
  5. TRILEPTAL [Concomitant]
     Route: 048
     Dates: start: 20061101
  6. SPECIAFOLDINE [Concomitant]
     Route: 048
  7. PREZISTA [Suspect]
     Indication: PRODUCT USED FOR UNKNOWN INDICATION
     Route: 048
     Dates: start: 20070401
  8. NORVIR [Suspect]
     Indication: PRODUCT USED FOR UNKNOWN INDICATION
     Route: 048
     Dates: start: 20070401
  9. DEPAKENE [Suspect]
     Indication: PRODUCT USED FOR UNKNOWN INDICATION
     Route: 048
     Dates: start: 20060101
  10. ISENTRESS [Suspect]
     Indication: PRODUCT USED FOR UNKNOWN INDICATION
     Route: 048
     Dates: start: 20070401
  11. VFEND [Suspect]
     Indication: PRODUCT USED FOR UNKNOWN INDICATION
     Route: 048
     Dates: start: 20060621, end: 20110211
  12. TRUVADA [Suspect]
     Indication: PRODUCT USED FOR UNKNOWN INDICATION
     Dosage: 200MG/245MG
     Route: 048
     Dates: start: 20070101
  13. DITROPAN [Concomitant]
     Route: 048

REACTIONS (1)
  - PSEUDOEPITHELIOMATOUS HYPERPLASIA [None]
